FAERS Safety Report 5383583-7 (Version None)
Quarter: 2007Q3

REPORT INFORMATION
  Report Type: 
  Country: None (occurrence: None)
  Receive Date: 20070706
  Receipt Date: 20070627
  Transmission Date: 20080115
  Serious: Yes (Other)
  Sender: FDA-Public Use
  Company Number: 2007-03079

PATIENT
  Age: 49 Year
  Sex: Male

DRUGS (1)
  1. MONODOX [Suspect]
     Indication: URETHRITIS

REACTIONS (2)
  - DISEASE RECURRENCE [None]
  - ERYTHEMA MULTIFORME [None]
